FAERS Safety Report 9463155 (Version 2)
Quarter: 2013Q3

REPORT INFORMATION
  Report Type: Spontaneous
  Country: US (occurrence: US)
  Receive Date: 20130817
  Receipt Date: 20130902
  Transmission Date: 20140515
  Serious: Yes (Other)
  Sender: FDA-Public Use
  Company Number: US-ROCHE-1262686

PATIENT
  Sex: Female
  Weight: 93.52 kg

DRUGS (11)
  1. ACTEMRA [Suspect]
     Indication: RHEUMATOID ARTHRITIS
     Route: 042
     Dates: start: 20130319
  2. ACTEMRA [Suspect]
     Route: 042
     Dates: end: 20130806
  3. PREDNISONE [Suspect]
     Indication: RHEUMATOID ARTHRITIS
     Route: 048
  4. NORVASC [Concomitant]
     Indication: HYPERTENSION
     Route: 065
  5. ASPIRIN [Concomitant]
     Route: 048
  6. TENORMIN [Concomitant]
     Indication: HYPERTENSION
     Dosage: NIGHT.
     Route: 048
  7. NEXIUM [Concomitant]
     Route: 065
  8. TAMBOCOR [Concomitant]
     Route: 065
  9. FOLVITE [Concomitant]
     Route: 065
  10. VICODIN [Concomitant]
     Dosage: AS REQUIRED.
     Route: 065
  11. ARAVA [Concomitant]
     Route: 065

REACTIONS (1)
  - Haematochezia [Recovered/Resolved]
